FAERS Safety Report 22211770 (Version 3)
Quarter: 2023Q2

REPORT INFORMATION
  Report Type: Spontaneous
  Country: IT (occurrence: IT)
  Receive Date: 20230414
  Receipt Date: 20230602
  Transmission Date: 20230721
  Serious: Yes (Hospitalization)
  Sender: FDA-Public Use
  Company Number: None

PATIENT
  Age: 23 Year
  Sex: Male

DRUGS (1)
  1. BUPROPION [Suspect]
     Active Substance: BUPROPION
     Indication: Product used for unknown indication
     Dosage: PATIENT IN TREATMENT, DOSAGE NOT KNOWN, TAKEN FOR SELF-HARMING PURPOSES
     Route: 065
     Dates: start: 20230212

REACTIONS (6)
  - Suicide attempt [Recovering/Resolving]
  - Electrocardiogram QT prolonged [Recovering/Resolving]
  - Seizure [Recovering/Resolving]
  - Tachycardia [Recovering/Resolving]
  - Mydriasis [Unknown]
  - Intentional overdose [Unknown]

NARRATIVE: CASE EVENT DATE: 20230212
